FAERS Safety Report 4805227-2 (Version None)
Quarter: 2005Q4

REPORT INFORMATION
  Report Type: 
  Country: None (occurrence: None)
  Receive Date: 20051017
  Receipt Date: 20051003
  Transmission Date: 20060501
  Serious: Yes (Other)
  Sender: FDA-Public Use
  Company Number: 2005136729

PATIENT
  Age: 26 Year
  Sex: Male
  Weight: 99.7913 kg

DRUGS (2)
  1. DRAMAMINE [Suspect]
     Indication: NAUSEA
     Dosage: 8 TABS 2-3X DAILY, ORAL
     Route: 048
     Dates: start: 20030101
  2. METHADONE HCL [Concomitant]

REACTIONS (1)
  - DRUG SCREEN POSITIVE [None]
